FAERS Safety Report 20481303 (Version 4)
Quarter: 2022Q3

REPORT INFORMATION
  Report Type: Report from Study
  Country: BR (occurrence: BR)
  Receive Date: 20220216
  Receipt Date: 20220924
  Transmission Date: 20221026
  Serious: Yes (Other)
  Sender: FDA-Public Use
  Company Number: BR-NOVARTISPH-NVSC2021BR177239

PATIENT
  Age: 42 Year
  Sex: Male

DRUGS (2)
  1. COSENTYX [Suspect]
     Active Substance: SECUKINUMAB
     Indication: Ankylosing spondylitis
     Dosage: UNK, QW (WEEKLY FOR 5 WEEKS)
     Route: 058
  2. COSENTYX [Suspect]
     Active Substance: SECUKINUMAB
     Dosage: UNK, QMO
     Route: 058

REACTIONS (21)
  - Immunodeficiency [Unknown]
  - Pruritus [Unknown]
  - Blister [Unknown]
  - Skin lesion [Unknown]
  - Skin swelling [Unknown]
  - Contusion [Unknown]
  - Scratch [Unknown]
  - Skin hypertrophy [Unknown]
  - Injection site pruritus [Unknown]
  - Skin laceration [Unknown]
  - Blister rupture [Unknown]
  - Injection site mass [Unknown]
  - Injection site erythema [Unknown]
  - Injection site bruising [Unknown]
  - Adverse drug reaction [Unknown]
  - Urticaria [Unknown]
  - Sleep deficit [Unknown]
  - Wound [Unknown]
  - Chillblains [Unknown]
  - Intercepted medication error [Unknown]
  - Product prescribing error [Unknown]

NARRATIVE: CASE EVENT DATE: 20210728
